FAERS Safety Report 9522677 (Version 2)
Quarter: 2014Q1

REPORT INFORMATION
  Report Type: Spontaneous
  Country: GB (occurrence: GB)
  Receive Date: 20130913
  Receipt Date: 20140110
  Transmission Date: 20141002
  Serious: Yes (Hospitalization)
  Sender: FDA-Public Use
  Company Number: GB-ASTRAZENECA-2013SE67311

PATIENT
  Age: 59 Year
  Sex: Male
  Weight: 81.6 kg

DRUGS (5)
  1. LIGNOCAINE [Suspect]
     Indication: LOCAL ANAESTHESIA
     Route: 061
     Dates: start: 20130814, end: 20130814
  2. HYALASE [Suspect]
     Indication: LOCAL ANAESTHESIA
     Route: 061
     Dates: start: 20130814, end: 20130814
  3. LEVOBUPIVACAINE [Suspect]
     Route: 061
     Dates: start: 20130814, end: 20130814
  4. AMLODIPINE [Concomitant]
     Dates: start: 2009
  5. RAMIPRIL [Concomitant]
     Dates: start: 2009

REACTIONS (1)
  - Eyelid oedema [Recovering/Resolving]
